FAERS Safety Report 9791419 (Version 2)
Quarter: 2014Q1

REPORT INFORMATION
  Report Type: Report from Study
  Country: NZ (occurrence: NZ)
  Receive Date: 20140101
  Receipt Date: 20140101
  Transmission Date: 20141002
  Serious: Yes (Hospitalization, Other)
  Sender: FDA-Public Use
  Company Number: PHHY2013NZ142307

PATIENT
  Age: 38 Year
  Sex: Female

DRUGS (3)
  1. CLOZARIL [Suspect]
     Indication: SCHIZOPHRENIA
     Dosage: 350 MG,
     Dates: start: 20131111, end: 20131124
  2. SODIUM VALPROATE [Concomitant]
     Indication: EPILEPSY
     Dosage: 1200 MG, UNK
     Route: 048
  3. LEVLEN ED [Concomitant]
     Indication: CONTRACEPTION
     Dosage: 1 DF, UNK
     Route: 048

REACTIONS (22)
  - Myocarditis [Recovered/Resolved]
  - Blood creatine phosphokinase increased [Unknown]
  - Left ventricular dysfunction [Unknown]
  - Mitral valve incompetence [Unknown]
  - Aortic valve incompetence [Unknown]
  - Pericardial effusion [Unknown]
  - Myocarditis [Unknown]
  - Pneumonia [Unknown]
  - Tachyarrhythmia [Unknown]
  - Malaise [Unknown]
  - Cough [Unknown]
  - Blood albumin decreased [Unknown]
  - Blood calcium decreased [Unknown]
  - Blood sodium decreased [Recovered/Resolved]
  - Protein total decreased [Unknown]
  - Thyroxine free decreased [Recovered/Resolved]
  - Neutrophil count increased [Recovered/Resolved]
  - Pyrexia [Unknown]
  - Monocyte count increased [Recovered/Resolved]
  - Fatigue [Unknown]
  - Dizziness [Unknown]
  - Tachycardia [Unknown]
